FAERS Safety Report 10090464 (Version 3)
Quarter: 2014Q2

REPORT INFORMATION
  Report Type: Spontaneous
  Country: US (occurrence: None)
  Receive Date: 20140417
  Receipt Date: 20140512
  Transmission Date: 20141212
  Serious: Yes (Death, Hospitalization)
  Sender: FDA-Public Use
  Company Number: UTC-047134

PATIENT
  Age: 44 Year
  Sex: Male
  Weight: 122.4 kg

DRUGS (2)
  1. REMODULIN [Suspect]
     Indication: COR PULMONALE CHRONIC
     Dosage: 103.68 UG/KG (0.072 UG/KG, 1 IN 1 MIN),INTRAVENOUS DRIP
     Route: 041
     Dates: start: 20121207
  2. REVATIO (SILDENAFIL CITRATE) [Concomitant]

REACTIONS (11)
  - Azotaemia [None]
  - Dyspnoea [None]
  - Asthenia [None]
  - Azotaemia [None]
  - Dyspnoea [None]
  - Asthenia [None]
  - Shock [None]
  - Renal failure acute [None]
  - Device malfunction [None]
  - Right ventricular failure [None]
  - Device related sepsis [None]
